FAERS Safety Report 25974041 (Version 1)
Quarter: 2025Q4

REPORT INFORMATION
  Report Type: Spontaneous
  Country: US (occurrence: None)
  Receive Date: 20251028
  Receipt Date: 20251028
  Transmission Date: 20260117
  Serious: Yes (Hospitalization, Other)
  Sender: FDA-CTU
  Company Number: None

PATIENT
  Age: 59 Year
  Sex: Female
  Weight: 51.4 kg

DRUGS (1)
  1. VANCOMYCIN [Suspect]
     Active Substance: VANCOMYCIN
     Indication: Cough
     Dosage: FREQUENCY : ONCE;?
     Route: 041
     Dates: start: 20251022, end: 20251022

REACTIONS (6)
  - Nausea [None]
  - Vomiting [None]
  - Hot flush [None]
  - Hypoaesthesia oral [None]
  - Aphasia [None]
  - Anxiety [None]

NARRATIVE: CASE EVENT DATE: 20251022
